FAERS Safety Report 13757560 (Version 1)
Quarter: 2017Q3

REPORT INFORMATION
  Report Type: Spontaneous
  Country: US (occurrence: US)
  Receive Date: 20170717
  Receipt Date: 20170717
  Transmission Date: 20171127
  Serious: No
  Sender: FDA-Public Use
  Company Number: US-ENDO PHARMACEUTICALS INC-2016-006242

PATIENT
  Age: 55 Year
  Sex: Male
  Weight: 117.13 kg

DRUGS (1)
  1. NYSTATIN CREAM [Suspect]
     Active Substance: NYSTATIN
     Indication: FUNGAL INFECTION
     Route: 061
     Dates: start: 20161010, end: 20161010

REACTIONS (3)
  - Drug ineffective [Not Recovered/Not Resolved]
  - Drug dose omission [Not Recovered/Not Resolved]
  - Product quality issue [Unknown]

NARRATIVE: CASE EVENT DATE: 201610
